FAERS Safety Report 20604312 (Version 1)
Quarter: 2022Q1

REPORT INFORMATION
  Report Type: Spontaneous
  Country: US (occurrence: US)
  Receive Date: 20220316
  Receipt Date: 20220316
  Transmission Date: 20220424
  Serious: No
  Sender: FDA-Public Use
  Company Number: US-SA-SAC20220310001909

PATIENT
  Sex: Female

DRUGS (10)
  1. DUPIXENT [Suspect]
     Active Substance: DUPILUMAB
     Indication: Dermatitis atopic
     Dosage: 300 MG, QOW
     Route: 058
  2. CLOBETASOL [Concomitant]
     Active Substance: CLOBETASOL
  3. DESONATE [Concomitant]
     Active Substance: DESONIDE
  4. DESONIDE [Concomitant]
     Active Substance: DESONIDE
  5. HALCINONIDE [Concomitant]
     Active Substance: HALCINONIDE
  6. KENALOG [Concomitant]
     Active Substance: TRIAMCINOLONE ACETONIDE
  7. LORATADINE [Concomitant]
     Active Substance: LORATADINE
  8. ULTRAVATE [BETAMETHASONE DIPROPIONATE] [Concomitant]
  9. HPR [Concomitant]
  10. CETAPHIL [DIMETICONE;GLYCEROL] [Concomitant]

REACTIONS (3)
  - COVID-19 [Not Recovered/Not Resolved]
  - Dermatitis atopic [Not Recovered/Not Resolved]
  - Pain [Not Recovered/Not Resolved]
